FAERS Safety Report 9411207 (Version 1)
Quarter: 2013Q3

REPORT INFORMATION
  Report Type: Spontaneous
  Country: GB (occurrence: GB)
  Receive Date: 20130722
  Receipt Date: 20130722
  Transmission Date: 20140515
  Serious: Yes (Other)
  Sender: FDA-Public Use
  Company Number: GB-AMGEN-GBRSP2013050177

PATIENT
  Age: 55 Year
  Sex: Male
  Weight: 75 kg

DRUGS (7)
  1. NEULASTA [Suspect]
     Indication: PROPHYLAXIS
     Dosage: 6 MG, UNK
     Route: 058
     Dates: start: 20121115, end: 201211
  2. CYCLOPHOSPHAMIDE [Concomitant]
     Indication: CHEMOTHERAPY
     Dosage: 1440 MG, UNK
     Route: 042
     Dates: start: 20121114, end: 20121114
  3. DOXORUBICIN [Concomitant]
     Indication: CHEMOTHERAPY
     Dosage: 86 MG, UNK
     Route: 042
     Dates: start: 20121114, end: 20121114
  4. MABTHERA [Concomitant]
     Indication: CHEMOTHERAPY
     Dosage: 720 MG, UNK
     Route: 042
     Dates: start: 20121114, end: 20121114
  5. METOCLOPRAMIDE [Concomitant]
     Indication: CHEMOTHERAPY
     Dosage: 10 MG, UNK
     Route: 048
     Dates: start: 20121114, end: 20121117
  6. ONDANSETRON [Concomitant]
     Indication: CHEMOTHERAPY
     Dosage: 8 MG, UNK
     Route: 048
     Dates: start: 20121114, end: 20121117
  7. VINCRISTINE [Concomitant]
     Indication: CHEMOTHERAPY
     Dosage: 2 MG, UNK
     Route: 042
     Dates: start: 20121114, end: 20121114

REACTIONS (2)
  - Blister [Recovered/Resolved]
  - Erythema [Recovered/Resolved]
